FAERS Safety Report 7645437-2 (Version None)
Quarter: 2011Q3

REPORT INFORMATION
  Report Type: 
  Country: None (occurrence: None)
  Receive Date: 20110729
  Receipt Date: 20110726
  Transmission Date: 20111222
  Serious: Yes (Hospitalization, Other)
  Sender: FDA-Public Use
  Company Number: CHPA2011US09883

PATIENT
  Age: 67 Year
  Sex: Female

DRUGS (5)
  1. NORCO [Concomitant]
  2. VOLTAREN [Suspect]
     Indication: BACK PAIN
  3. MORPHINE [Concomitant]
  4. VOLTAREN [Suspect]
     Indication: MUSCULOSKELETAL PAIN
     Dosage: 2 G, POSSIBLY 2 TIMES A DAY
     Route: 061
  5. MORPHINE [Concomitant]

REACTIONS (8)
  - HAND FRACTURE [None]
  - FOOT FRACTURE [None]
  - OFF LABEL USE [None]
  - RENAL FAILURE [None]
  - SHOULDER ARTHROPLASTY [None]
  - FALL [None]
  - ARTHRALGIA [None]
  - DRUG ADMINISTERED AT INAPPROPRIATE SITE [None]
